FAERS Safety Report 15804541 (Version 4)
Quarter: 2019Q2

REPORT INFORMATION
  Report Type: Spontaneous
  Country: DE (occurrence: DE)
  Receive Date: 20190109
  Receipt Date: 20190523
  Transmission Date: 20190711
  Serious: Yes (Hospitalization, Other)
  Sender: FDA-Public Use
  Company Number: PHHY2019DE002763

PATIENT
  Age: 64 Year
  Sex: Male
  Weight: 76 kg

DRUGS (25)
  1. MOVICOL [Concomitant]
     Active Substance: POLYETHYLENE GLYCOL 3350\POTASSIUM CHLORIDE\SODIUM BICARBONATE\SODIUM CHLORIDE
     Indication: PROPHYLAXIS
     Dosage: 1 DF, QD
     Route: 048
     Dates: start: 20181228
  2. BETAISODONA [Concomitant]
     Active Substance: POVIDONE-IODINE
     Indication: PANCYTOPENIA
     Dosage: 3 DF, QD
     Route: 048
     Dates: start: 20190102, end: 20190109
  3. ATORVASTATIN [Concomitant]
     Active Substance: ATORVASTATIN
     Indication: HYPERCHOLESTEROLAEMIA
     Dosage: 40 MILLIGRAM
     Route: 048
  4. SODIUM CHLORIDE. [Concomitant]
     Active Substance: SODIUM CHLORIDE
     Dosage: 3000 MG, QD
     Route: 048
     Dates: start: 20190103
  5. ZOMETA [Concomitant]
     Active Substance: ZOLEDRONIC ACID
     Indication: PROPHYLAXIS
     Dosage: 100 MG, QMO
     Route: 041
     Dates: start: 20181114
  6. CARBOPLATIN. [Suspect]
     Active Substance: CARBOPLATIN
     Indication: NON-SMALL CELL LUNG CANCER
     Dosage: UNK (6 MG MIN/ML)
     Route: 041
  7. RAMIPRIL. [Concomitant]
     Active Substance: RAMIPRIL
     Indication: HYPERTENSION
     Dosage: 1.25 MILLIGRAM
     Route: 048
     Dates: start: 201812
  8. AMPICILLIN AND SULBACTAM [Concomitant]
     Active Substance: AMPICILLIN SODIUM\SULBACTAM SODIUM
     Indication: PNEUMONIA
     Dosage: 3 DF, QD
     Route: 041
     Dates: start: 20190102, end: 20190109
  9. BETAISODONA [Concomitant]
     Active Substance: POVIDONE-IODINE
     Indication: LEUKOPENIA
     Dosage: 3 DF, QD
     Route: 048
     Dates: start: 20181206, end: 20181210
  10. ZOPICLONE [Concomitant]
     Active Substance: ZOPICLONE
     Indication: PROPHYLAXIS
     Dosage: 7.5 MG, UNK
     Route: 048
  11. AMPHO-MORONAL [Concomitant]
     Active Substance: AMPHOTERICIN B
     Indication: LEUKOPENIA
     Dosage: 4 DF, QD
     Route: 048
     Dates: start: 20181206, end: 20181210
  12. SODIUM CHLORIDE. [Concomitant]
     Active Substance: SODIUM CHLORIDE
     Indication: HYPONATRAEMIA
     Dosage: 10 ML, UNK
     Route: 048
     Dates: start: 20190103, end: 20190109
  13. FLUCONAZOLE. [Concomitant]
     Active Substance: FLUCONAZOLE
     Indication: PANCYTOPENIA
     Dosage: 200 MG, QD
     Route: 048
     Dates: start: 20190102, end: 20190103
  14. RAMIPRIL. [Concomitant]
     Active Substance: RAMIPRIL
     Dosage: 1.25 MILLIGRAM
     Route: 048
     Dates: start: 20181206
  15. DEXAMETHASONE. [Concomitant]
     Active Substance: DEXAMETHASONE
     Indication: PROPHYLAXIS
     Dosage: 8 MG, QD
     Route: 041
  16. ONDANSETRON [Concomitant]
     Active Substance: ONDANSETRON
     Indication: PROPHYLAXIS
     Dosage: 8 MG, UNK
     Route: 041
  17. IBUPROFEN. [Concomitant]
     Active Substance: IBUPROFEN
     Indication: TUMOUR PAIN
     Dosage: 600 MG, UNK
     Route: 048
  18. AMPHO-MORONAL [Concomitant]
     Active Substance: AMPHOTERICIN B
     Dosage: 4 DOSAGE FORMS
     Route: 048
     Dates: start: 20190102, end: 20190109
  19. CINEOLE [Concomitant]
     Active Substance: EUCALYPTOL
     Indication: PROPHYLAXIS
     Dosage: 600 MG, QD
     Route: 048
     Dates: start: 20190103
  20. CIPROFLOXACIN. [Suspect]
     Active Substance: CIPROFLOXACIN
     Indication: PRODUCT USED FOR UNKNOWN INDICATION
     Dosage: UNK
     Route: 065
  21. HYDROMORPHONE [Concomitant]
     Active Substance: HYDROMORPHONE
     Indication: TUMOUR PAIN
     Dosage: 8 MG, QD
     Route: 048
     Dates: start: 20181228
  22. ACETYLSALICYLIC ACID [Concomitant]
     Active Substance: ASPIRIN
     Indication: HYPERTENSION
     Dosage: 100 MILLIGRAM
     Route: 048
  23. KALINOR (POTASSIUM CHLORIDE) [Suspect]
     Active Substance: POTASSIUM CHLORIDE
     Indication: HYPOKALAEMIA
     Dosage: 1 DF, QD
     Route: 065
  24. ABRAXANE [Suspect]
     Active Substance: PACLITAXEL
     Indication: NON-SMALL CELL LUNG CANCER
     Dosage: 100 MG/M2, UNK
     Route: 041
  25. FLUCONAZOLE. [Concomitant]
     Active Substance: FLUCONAZOLE
     Indication: LEUKOPENIA
     Dosage: 200 MG, QD
     Route: 048
     Dates: start: 20181205, end: 20181210

REACTIONS (8)
  - Urinary tract infection [Recovered/Resolved]
  - Hyponatraemia [Unknown]
  - Leukopenia [Unknown]
  - Pyrexia [Unknown]
  - Ageusia [Recovered/Resolved]
  - Pancytopenia [Recovered/Resolved]
  - Spinal compression fracture [Recovered/Resolved]
  - Nausea [Recovered/Resolved]

NARRATIVE: CASE EVENT DATE: 201811
